FAERS Safety Report 25958117 (Version 1)
Quarter: 2025Q4

REPORT INFORMATION
  Report Type: Spontaneous
  Country: EU (occurrence: EU)
  Receive Date: 20251024
  Receipt Date: 20251024
  Transmission Date: 20260118
  Serious: Yes (Death, Hospitalization)
  Sender: MYLAN
  Company Number: None

PATIENT
  Age: 71 Year
  Sex: Female
  Weight: 50 kg

DRUGS (8)
  1. NEURONTIN [Suspect]
     Active Substance: GABAPENTIN
     Indication: Neuralgia
     Dosage: 300 MILLIGRAM, Q8H
     Dates: start: 20250701, end: 20250719
  2. NEURONTIN [Suspect]
     Active Substance: GABAPENTIN
     Dosage: 300 MILLIGRAM, Q8H
     Route: 048
     Dates: start: 20250701, end: 20250719
  3. NEURONTIN [Suspect]
     Active Substance: GABAPENTIN
     Dosage: 300 MILLIGRAM, Q8H
     Route: 048
     Dates: start: 20250701, end: 20250719
  4. NEURONTIN [Suspect]
     Active Substance: GABAPENTIN
     Dosage: 300 MILLIGRAM, Q8H
     Dates: start: 20250701, end: 20250719
  5. ALBUTEROL [Concomitant]
     Active Substance: ALBUTEROL
     Indication: Chronic obstructive pulmonary disease
     Dosage: UNK, TID (2 DOSES 3 X DAILY, INH AEROSOL, SUSP )
     Dates: start: 20240409, end: 20250719
  6. ALBUTEROL [Concomitant]
     Active Substance: ALBUTEROL
     Dosage: UNK, TID (2 DOSES 3 X DAILY, INH AEROSOL, SUSP )
     Route: 065
     Dates: start: 20240409, end: 20250719
  7. ALBUTEROL [Concomitant]
     Active Substance: ALBUTEROL
     Dosage: UNK, TID (2 DOSES 3 X DAILY, INH AEROSOL, SUSP )
     Route: 065
     Dates: start: 20240409, end: 20250719
  8. ALBUTEROL [Concomitant]
     Active Substance: ALBUTEROL
     Dosage: UNK, TID (2 DOSES 3 X DAILY, INH AEROSOL, SUSP )
     Dates: start: 20240409, end: 20250719

REACTIONS (4)
  - Asphyxia [Fatal]
  - Swollen tongue [Fatal]
  - Circulatory collapse [Fatal]
  - Brain injury [Fatal]

NARRATIVE: CASE EVENT DATE: 20250719
